FAERS Safety Report 8901625 (Version 1)
Quarter: 2012Q4

REPORT INFORMATION
  Report Type: Spontaneous
  Country: US (occurrence: None)
  Receive Date: 20121108
  Receipt Date: 20121108
  Transmission Date: 20130627
  Serious: Yes (Other)
  Sender: FDA-Public Use
  Company Number: None

PATIENT
  Age: 62 Year
  Sex: Female
  Weight: 72.12 kg

DRUGS (4)
  1. CARVEDILOL [Suspect]
     Indication: UNCONTROLLED HYPERTENSION
     Route: 048
     Dates: start: 20120918, end: 20121105
  2. LISINOPRIL [Concomitant]
  3. FUROSEMIDE [Concomitant]
  4. GLIPIZIDE [Concomitant]

REACTIONS (4)
  - Back pain [None]
  - Neck pain [None]
  - Discomfort [None]
  - Asthenia [None]
